FAERS Safety Report 26103796 (Version 2)
Quarter: 2025Q4

REPORT INFORMATION
  Report Type: Spontaneous
  Country: CN (occurrence: CN)
  Receive Date: 20251129
  Receipt Date: 20251224
  Transmission Date: 20260118
  Serious: Yes (Hospitalization)
  Sender: ALEXION PHARMACEUTICALS
  Company Number: CN-AstraZeneca-CH-01001945A

PATIENT
  Age: 67 Year
  Sex: Female
  Weight: 43.5 kg

DRUGS (1)
  1. TAGRISSO [Suspect]
     Active Substance: OSIMERTINIB
     Indication: Lung neoplasm malignant
     Dosage: 80 MILLIGRAM, QD
     Route: 061

REACTIONS (13)
  - Dysphonia [Not Recovered/Not Resolved]
  - Blood pressure abnormal [Unknown]
  - Malaise [Unknown]
  - Eating disorder [Unknown]
  - Rash [Unknown]
  - Ulcer [Unknown]
  - Sleep disorder [Unknown]
  - Weight decreased [Unknown]
  - Cardiac disorder [Unknown]
  - Speech disorder [Unknown]
  - Blood pressure increased [Unknown]
  - Anxiety [Unknown]
  - Apraxia [Unknown]

NARRATIVE: CASE EVENT DATE: 20250101
